FAERS Safety Report 16108601 (Version 1)
Quarter: 2019Q1

REPORT INFORMATION
  Report Type: Report from Study
  Country: FR (occurrence: FR)
  Receive Date: 20190323
  Receipt Date: 20190323
  Transmission Date: 20190418
  Serious: Yes (Hospitalization, Other)
  Sender: FDA-Public Use
  Company Number: FR-ACCORD-114204

PATIENT
  Age: 43 Year
  Sex: Male

DRUGS (2)
  1. FOLATE SODIUM/FOLIC ACID [Concomitant]
     Indication: PSORIASIS
     Dosage: 5 OR 10 MG 48 H AFTER THE METHOTREXATE DOSE
  2. METHOTREXATE. [Suspect]
     Active Substance: METHOTREXATE
     Indication: PSORIASIS
     Dosage: TEST DOSE 5 MG
     Route: 048

REACTIONS (2)
  - Bacterial infection [Recovered/Resolved]
  - Lung disorder [Recovered/Resolved]
